FAERS Safety Report 9098914 (Version 1)
Quarter: 2013Q1

REPORT INFORMATION
  Report Type: Spontaneous
  Country: US (occurrence: US)
  Receive Date: 20130213
  Receipt Date: 20130213
  Transmission Date: 20140127
  Serious: Yes (Other)
  Sender: FDA-Public Use
  Company Number: US-PFIZER INC-2013018501

PATIENT
  Age: 46 Year
  Sex: Male
  Weight: 72.56 kg

DRUGS (2)
  1. LYRICA [Suspect]
     Indication: NEUROPATHY PERIPHERAL
     Dosage: 150 MG, 3X/DAY
     Route: 048
  2. LORAZEPAM [Concomitant]
     Indication: PANIC ATTACK
     Dosage: UNK

REACTIONS (2)
  - Gait disturbance [Unknown]
  - Pain [Unknown]
